FAERS Safety Report 17130960 (Version 1)
Quarter: 2019Q4

REPORT INFORMATION
  Report Type: Spontaneous
  Country: US (occurrence: US)
  Receive Date: 20191209
  Receipt Date: 20191209
  Transmission Date: 20200122
  Serious: No
  Sender: FDA-Public Use
  Company Number: US-ROCHE-2373709

PATIENT
  Age: 52 Year
  Sex: Female

DRUGS (3)
  1. CARBAMAZEPINE. [Concomitant]
     Active Substance: CARBAMAZEPINE
     Indication: INSOMNIA
  2. DIAZEPAM. [Suspect]
     Active Substance: DIAZEPAM
     Indication: INSOMNIA
     Route: 065
  3. CLONAZEPAM. [Concomitant]
     Active Substance: CLONAZEPAM
     Indication: INSOMNIA
     Route: 065

REACTIONS (2)
  - Drug ineffective [Unknown]
  - No adverse event [Unknown]
